FAERS Safety Report 7465599-X (Version None)
Quarter: 2011Q2

REPORT INFORMATION
  Report Type: 
  Country: None (occurrence: None)
  Receive Date: 20110509
  Receipt Date: 20110421
  Transmission Date: 20111010
  Serious: No
  Sender: FDA-Public Use
  Company Number: US-B.I. PHARMACEUTICALS,INC./RIDGEFIELD-2011-BP-03931BP

PATIENT
  Sex: Male

DRUGS (9)
  1. ESTAZALAM [Concomitant]
  2. SPIRONOLACTONE [Concomitant]
     Indication: HYPERTENSION
  3. HYZAAR [Concomitant]
     Indication: PROSTATOMEGALY
  4. FLOMAX [Concomitant]
     Indication: PROSTATOMEGALY
  5. HYTRIN [Concomitant]
     Indication: HYPERTENSION
  6. FUROSEMIDE [Concomitant]
  7. PRADAXA [Suspect]
     Indication: ATRIAL FIBRILLATION
     Dosage: 300 MG
     Route: 048
     Dates: start: 20110122
  8. PRADAXA [Suspect]
     Indication: THROMBOSIS
  9. WARFARIN [Concomitant]

REACTIONS (6)
  - FLATULENCE [None]
  - CONTUSION [None]
  - ASTHENIA [None]
  - ABDOMINAL PAIN UPPER [None]
  - BACK PAIN [None]
  - ABDOMINAL DISCOMFORT [None]
